FAERS Safety Report 24654496 (Version 1)
Quarter: 2024Q4

REPORT INFORMATION
  Report Type: Report from Study
  Country: GR (occurrence: GR)
  Receive Date: 20241122
  Receipt Date: 20241122
  Transmission Date: 20250114
  Serious: Yes (Hospitalization)
  Sender: ABBVIE
  Company Number: GR-ABBVIE-6006731

PATIENT
  Age: 64 Year
  Sex: Female
  Weight: 58 kg

DRUGS (2)
  1. CARBIDOPA\LEVODOPA [Suspect]
     Active Substance: CARBIDOPA\LEVODOPA
     Indication: Parkinson^s disease
     Dosage: MORNING DOSE: 12.0ML; CONTINUOUS RATE: 3.4ML/H; EXTRA DOSE: 2.2ML
     Route: 050
     Dates: start: 20200622
  2. CARBIDOPA\LEVODOPA [Suspect]
     Active Substance: CARBIDOPA\LEVODOPA
     Dosage: MORNING DOSE: 12.0ML; CONTINUOUS RATE: 3.4ML/H; EXTRA DOSE: 2.2ML
     Route: 050

REACTIONS (3)
  - Respiratory tract infection [Recovering/Resolving]
  - White blood cells urine positive [Not Recovered/Not Resolved]
  - Pyrexia [Recovered/Resolved]

NARRATIVE: CASE EVENT DATE: 20241111
